FAERS Safety Report 7025782-4 (Version None)
Quarter: 2010Q4

REPORT INFORMATION
  Report Type: 
  Country: None (occurrence: None)
  Receive Date: 20101004
  Receipt Date: 20100921
  Transmission Date: 20110411
  Serious: Yes (Hospitalization)
  Sender: FDA-Public Use
  Company Number: BR-BIOGENIDEC-2010BI032838

PATIENT
  Age: 28 Year
  Sex: Female
  Weight: 62 kg

DRUGS (5)
  1. AVONEX [Suspect]
     Indication: MULTIPLE SCLEROSIS
     Route: 030
     Dates: start: 20100601, end: 20100801
  2. AVONEX [Suspect]
     Route: 030
     Dates: start: 20100901
  3. MAREVAN [Concomitant]
     Indication: THROMBOSIS
     Dates: start: 20100201, end: 20100801
  4. UNSPECIFIED ANTIBIOTIC [Concomitant]
     Indication: SINUSITIS
  5. UNSPECIFIED ANALGESIC [Concomitant]
     Indication: HEADACHE
     Dates: start: 20100101

REACTIONS (2)
  - CEREBRAL HAEMORRHAGE [None]
  - CEREBRAL VENOUS THROMBOSIS [None]
